FAERS Safety Report 4667871-5 (Version None)
Quarter: 2005Q2

REPORT INFORMATION
  Report Type: 
  Country: None (occurrence: None)
  Receive Date: 20050520
  Receipt Date: 20050520
  Transmission Date: 20051028
  Serious: No
  Sender: FDA-Public Use
  Company Number: None

PATIENT
  Sex: Female
  Weight: 59 kg

DRUGS (8)
  1. DOXORUBICIN [Suspect]
     Indication: HODGKIN'S DISEASE
     Dosage: 25 MG/M2, IV, WEEKS 1,3,5,7,9,11
     Route: 042
     Dates: start: 20050126
  2. VINBLASTINE [Suspect]
     Dosage: 6 MG/M2, IV, WEEKS 1,3,5,7,9,11
     Route: 042
  3. VINCRISTINE [Suspect]
     Dosage: 1.4 MG/M2, IV, WEEKS, 2,4,6,8,10,12
     Route: 042
  4. BLEOMYCIN [Suspect]
     Dosage: 5U/M2, IV, WEEKS 2,4,6,8, 10,12
     Route: 042
  5. MUSTARGEN [Suspect]
     Dosage: 6 MG/M2, IV, WEEKS 1,5,9
     Route: 042
  6. ETOPOSIDE [Suspect]
     Dosage: (VP-16)60 MG/M2, IVX2, WEEKS 3,7,11
     Route: 042
  7. PREDNISONE [Suspect]
     Dosage: 40 MG/M2, PO COD, WEEKS 1-9,TAPER
     Route: 048
  8. BACTRIM DS [Concomitant]

REACTIONS (22)
  - ABDOMINAL PAIN LOWER [None]
  - ABDOMINAL TENDERNESS [None]
  - BIOPSY COLON ABNORMAL [None]
  - BLOOD GLUCOSE INCREASED [None]
  - BLOOD POTASSIUM DECREASED [None]
  - CLOSTRIDIUM DIFFICILE TOXIN TEST POSITIVE [None]
  - COLITIS [None]
  - COMPUTERISED TOMOGRAM ABDOMEN ABNORMAL [None]
  - DYSTROPHIC CALCIFICATION [None]
  - FALLOPIAN TUBE DISORDER [None]
  - GASTROINTESTINAL INFLAMMATION [None]
  - GASTROINTESTINAL NECROSIS [None]
  - GASTROINTESTINAL OEDEMA [None]
  - HAEMATOCRIT DECREASED [None]
  - HAEMOGLOBIN DECREASED [None]
  - INFARCTION [None]
  - NAUSEA [None]
  - NEUTROPENIA [None]
  - OEDEMA MUCOSAL [None]
  - SUPRAPUBIC PAIN [None]
  - TACHYCARDIA [None]
  - VOMITING [None]
